FAERS Safety Report 7694242-X (Version None)
Quarter: 2011Q3

REPORT INFORMATION
  Report Type: 
  Country: None (occurrence: None)
  Receive Date: 20110819
  Receipt Date: 20110815
  Transmission Date: 20111222
  Serious: Yes (Death, Hospitalization)
  Sender: FDA-Public Use
  Company Number: US-GLAXOSMITHKLINE-A0925443A

PATIENT
  Age: 69 Year
  Sex: Male

DRUGS (12)
  1. PLAVIX [Concomitant]
  2. PRAVASTATIN [Concomitant]
  3. ISOSORBIDE MONONITRATE [Concomitant]
  4. ALLOPURINOL [Concomitant]
  5. DIOVAN [Concomitant]
  6. ASPIRIN [Concomitant]
  7. METOPROLOL TARTRATE [Concomitant]
  8. COMBIGAN [Concomitant]
  9. XALATAN [Concomitant]
  10. OLUX [Concomitant]
  11. ZETIA [Concomitant]
  12. AVANDIA [Suspect]
     Indication: DIABETES MELLITUS
     Dosage: 2MG PER DAY
     Route: 048
     Dates: start: 20050222, end: 20100801

REACTIONS (1)
  - DEATH [None]
